FAERS Safety Report 9302690 (Version 1)
Quarter: 2013Q2

REPORT INFORMATION
  Report Type: Spontaneous
  Country: CH (occurrence: CH)
  Receive Date: 20130522
  Receipt Date: 20130522
  Transmission Date: 20140414
  Serious: Yes (Other)
  Sender: FDA-Public Use
  Company Number: PHHY2013CH049632

PATIENT
  Age: 72 Year
  Sex: Male

DRUGS (3)
  1. SANDIMMUN [Suspect]
     Dosage: 250 MG OVER 10 HOUR (SYRINGE PREPARED WITH 5 AMPOULES OF EACH 50 MG/ML OF CYCLOSPORINE OR 5 ML IN 45
     Route: 041
     Dates: start: 20121128, end: 20121129
  2. SANDOSTATIN [Suspect]
  3. NEXIUM [Concomitant]

REACTIONS (3)
  - Wrong drug administered [Recovered/Resolved]
  - Renal failure acute [Recovered/Resolved]
  - Agitation [Recovered/Resolved]
